FAERS Safety Report 4618119-9 (Version None)
Quarter: 2005Q1

REPORT INFORMATION
  Report Type: 
  Country: None (occurrence: None)
  Receive Date: 20050322
  Receipt Date: 20050311
  Transmission Date: 20050727
  Serious: Yes (Other)
  Sender: FDA-Public Use
  Company Number: 2005044029

PATIENT
  Age: 61 Year
  Sex: Female
  Weight: 86.1834 kg

DRUGS (15)
  1. LIPITOR [Suspect]
     Indication: BLOOD CHOLESTEROL INCREASED
     Dosage: 80 M G (80 MG, 1 IN 1 D), ORAL
     Route: 048
  2. RANITIDINE HYDROCHLORIDE [Concomitant]
  3. CARVEDILOL [Concomitant]
  4. ISOSORBIDE MONONITRATE [Concomitant]
  5. HYDROCHLOROTHIAZIDE [Concomitant]
  6. CLOPIDOGREL BISULFATE [Concomitant]
  7. AMLODIPINE BESYLATE [Concomitant]
  8. CARBAMAZEPINE [Concomitant]
  9. POTASSIUM CHLORIDE [Concomitant]
  10. ASPIRIN [Concomitant]
  11. WARFARIN SODIUM [Concomitant]
  12. DIAZEPAM [Concomitant]
  13. NAPROXEN SODIUM [Concomitant]
  14. FLUOXETINE [Concomitant]
  15. NITROGLYCERIN [Concomitant]

REACTIONS (6)
  - DECREASED ACTIVITY [None]
  - FATIGUE [None]
  - SKIN DISORDER [None]
  - SKIN EXFOLIATION [None]
  - SKIN HAEMORRHAGE [None]
  - STENT PLACEMENT [None]
